FAERS Safety Report 4652200-3 (Version None)
Quarter: 2005Q2

REPORT INFORMATION
  Report Type: 
  Country: None (occurrence: None)
  Receive Date: 20050502
  Receipt Date: 20050420
  Transmission Date: 20051028
  Serious: Yes (Other)
  Sender: FDA-Public Use
  Company Number: GXKR2005JP00933

PATIENT
  Age: 62 Year
  Sex: Male

DRUGS (2)
  1. RIFAMPICIN [Suspect]
     Indication: RENAL TUBERCULOSIS
  2. ISONIAZID [Suspect]
     Indication: RENAL TUBERCULOSIS

REACTIONS (8)
  - DERMATITIS ACNEIFORM [None]
  - DRUG EFFECT DECREASED [None]
  - DRUG RESISTANCE [None]
  - ERYTHEMA MULTIFORME [None]
  - ROSACEA [None]
  - SKIN NECROSIS [None]
  - SKIN ULCER [None]
  - SUBCUTANEOUS ABSCESS [None]
